FAERS Safety Report 6638685-1 (Version None)
Quarter: 2010Q1

REPORT INFORMATION
  Report Type: 
  Country: None (occurrence: None)
  Receive Date: 20100316
  Receipt Date: 20100316
  Transmission Date: 20100710
  Serious: Yes (Life-Threatening, Hospitalization)
  Sender: FDA-Public Use
  Company Number: None

PATIENT
  Sex: Female
  Weight: 76.2043 kg

DRUGS (17)
  1. PEGASYS [Suspect]
     Indication: HEPATITIS C
     Dosage: 180 MCG/0.5 ML PFS WEEKLY SQ
     Route: 058
     Dates: start: 20100222
  2. RIBAVIRIN 200 MG CAP 84 [Suspect]
     Indication: HEPATITIS C
     Dosage: -2- 200 MG AM -3- 200 MG PM DAILY PO
     Route: 048
     Dates: start: 20100222
  3. LEXIVA [Concomitant]
  4. NORVIR [Concomitant]
  5. TRUVADA [Concomitant]
  6. HYDROXYZINE [Concomitant]
  7. NEXIUM [Concomitant]
  8. PERPHENAZINE [Concomitant]
  9. NORCO [Concomitant]
  10. PROMETHAZINE [Concomitant]
  11. WELLBUTRIN XL [Concomitant]
  12. AMITRIPTYLINE HCL [Concomitant]
  13. NAPROSYN [Concomitant]
  14. BENZONATATE [Concomitant]
  15. DOXYCYCLINE [Concomitant]
  16. PROAIR HFA [Concomitant]
  17. BACTRIM [Concomitant]

REACTIONS (2)
  - BLOOD PRESSURE INCREASED [None]
  - BRONCHITIS [None]
